FAERS Safety Report 14554207 (Version 1)
Quarter: 2018Q1

REPORT INFORMATION
  Report Type: Spontaneous
  Country: US (occurrence: US)
  Receive Date: 20180208
  Receipt Date: 20180208
  Transmission Date: 20180509
  Serious: Yes (Hospitalization)
  Sender: FDA-Public Use
  Company Number: None

PATIENT
  Age: 74 Year
  Sex: Male
  Weight: 81.2 kg

DRUGS (2)
  1. SEVOFLURANE. [Suspect]
     Active Substance: SEVOFLURANE
     Indication: ENDOBRONCHIAL ULTRASOUND
     Route: 055
     Dates: start: 20150513, end: 20150513
  2. SEVOFLURANE. [Suspect]
     Active Substance: SEVOFLURANE
     Indication: SURGERY
     Route: 055
     Dates: start: 20150513, end: 20150513

REACTIONS (2)
  - Oxygen saturation decreased [None]
  - Lethargy [None]

NARRATIVE: CASE EVENT DATE: 20150513
